FAERS Safety Report 9475115 (Version 1)
Quarter: 2013Q3

REPORT INFORMATION
  Report Type: Spontaneous
  Country: AT (occurrence: AT)
  Receive Date: 20130824
  Receipt Date: 20130824
  Transmission Date: 20140515
  Serious: Yes (Other)
  Sender: FDA-Public Use
  Company Number: AT-ROCHE-1265314

PATIENT
  Age: 59 Year
  Sex: Female

DRUGS (10)
  1. HERCEPTIN [Suspect]
     Indication: METASTATIC NEOPLASM
     Dosage: LOADING DOSE
     Route: 065
     Dates: start: 20120126
  2. HERCEPTIN [Suspect]
     Route: 065
     Dates: end: 20120921
  3. HERCEPTIN [Suspect]
     Route: 065
     Dates: start: 20121005
  4. XELODA [Suspect]
     Indication: METASTATIC NEOPLASM
     Route: 065
     Dates: start: 20121005
  5. AVASTIN [Suspect]
     Indication: METASTATIC NEOPLASM
     Route: 065
     Dates: start: 20121005
  6. TYVERB [Suspect]
     Indication: METASTATIC NEOPLASM
     Route: 065
     Dates: start: 20110126, end: 20111230
  7. TYVERB [Suspect]
     Route: 065
     Dates: start: 20120126, end: 20120921
  8. EPIRUBICIN [Concomitant]
     Dosage: CUMULATIVE DOSE 780 MG
     Route: 065
  9. TAXOTERE [Concomitant]
     Route: 065
  10. CYCLOPHOSPHAMID [Concomitant]
     Route: 065
     Dates: end: 201102

REACTIONS (1)
  - Metastases to skin [Unknown]
